FAERS Safety Report 5140341-6 (Version None)
Quarter: 2006Q4

REPORT INFORMATION
  Report Type: 
  Country: None (occurrence: None)
  Receive Date: 20061031
  Receipt Date: 20061020
  Transmission Date: 20070319
  Serious: Yes (Other)
  Sender: FDA-Public Use
  Company Number: 2006CG01728

PATIENT
  Age: 15 Year
  Sex: Male

DRUGS (2)
  1. BUPIVACAINE [Suspect]
     Indication: LOCAL ANAESTHESIA
     Route: 053
  2. LIDOCAINE [Suspect]
     Indication: LOCAL ANAESTHESIA
     Route: 053

REACTIONS (2)
  - ISCHAEMIA [None]
  - PENILE VASCULAR DISORDER [None]
